FAERS Safety Report 6978708-3 (Version None)
Quarter: 2010Q3

REPORT INFORMATION
  Report Type: 
  Country: None (occurrence: None)
  Receive Date: 20100913
  Receipt Date: 20100903
  Transmission Date: 20110219
  Serious: Yes (Other)
  Sender: FDA-Public Use
  Company Number: B0662479A

PATIENT
  Age: 19 Year
  Sex: Female

DRUGS (3)
  1. WELLBUTRIN [Suspect]
     Indication: PRODUCT USED FOR UNKNOWN INDICATION
     Dosage: 300MG AS REQUIRED
     Route: 065
     Dates: start: 20100201, end: 20100601
  2. AERIUS [Suspect]
     Indication: PRODUCT USED FOR UNKNOWN INDICATION
     Route: 065
  3. ABILIFY [Suspect]
     Dosage: 30MG PER DAY
     Route: 065
     Dates: start: 20100130

REACTIONS (4)
  - ANXIETY [None]
  - FATIGUE [None]
  - FEELING ABNORMAL [None]
  - SEDATION [None]
